FAERS Safety Report 19034713 (Version 1)
Quarter: 2021Q1

REPORT INFORMATION
  Report Type: Other
  Country: CN (occurrence: CN)
  Receive Date: 20210319
  Receipt Date: 20210319
  Transmission Date: 20210420
  Serious: Yes (Other)
  Sender: FDA-Public Use
  Company Number: CN-ROCHE-2788444

PATIENT

DRUGS (2)
  1. OXALIPLATIN. [Suspect]
     Active Substance: OXALIPLATIN
     Indication: COLORECTAL CANCER
     Dosage: DRIP INFUSION WAS COMPLETED IN 2 HOURS
     Route: 041
  2. CAPECITABINE. [Suspect]
     Active Substance: CAPECITABINE
     Indication: COLORECTAL CANCER
     Route: 048

REACTIONS (11)
  - Nausea [Unknown]
  - Diarrhoea [Unknown]
  - Platelet count decreased [Unknown]
  - Renal impairment [Unknown]
  - Pigmentation disorder [Unknown]
  - White blood cell count decreased [Unknown]
  - Leukopenia [Unknown]
  - Neurotoxicity [Unknown]
  - Vomiting [Unknown]
  - Hepatic function abnormal [Unknown]
  - Thrombocytopenia [Unknown]
